FAERS Safety Report 20908056 (Version 1)
Quarter: 2022Q2

REPORT INFORMATION
  Report Type: Report from Study
  Country: US (occurrence: US)
  Receive Date: 20220602
  Receipt Date: 20220602
  Transmission Date: 20220721
  Serious: Yes (Death, Other)
  Sender: FDA-Public Use
  Company Number: US-ACADIA PHARMACEUTICALS INC.-ACA-2022-PIM-001855

PATIENT
  Age: 81 Year
  Sex: Male

DRUGS (9)
  1. NUPLAZID [Suspect]
     Active Substance: PIMAVANSERIN TARTRATE
     Indication: Parkinson^s disease
     Dosage: 34 MILLIGRAM, QD
     Route: 048
     Dates: start: 20211119, end: 20220525
  2. VITAMIN B12 [Concomitant]
     Active Substance: CYANOCOBALAMIN
     Dosage: 1000 MICROGRAM
  3. CARBIDOPA\LEVODOPA [Concomitant]
     Active Substance: CARBIDOPA\LEVODOPA
     Dosage: 25-100 MILLIGRAM
  4. CLONAZEPAM [Concomitant]
     Active Substance: CLONAZEPAM
     Dosage: 0.5 MILLIGRAM
  5. COENZYME Q10 [Concomitant]
     Active Substance: DIETARY SUPPLEMENT\UBIDECARENONE
     Dosage: 30 MILLIGRAM
  6. LUTEIN [Concomitant]
     Active Substance: LUTEIN
     Dosage: 20 MILLIGRAM
  7. LYCOPENE [Concomitant]
     Active Substance: LYCOPENE
     Dosage: 10 MILLIGRAM
  8. MIRALAX [Concomitant]
     Active Substance: POLYETHYLENE GLYCOL 3350
     Dosage: 3350 NF
  9. SEROQUEL [Concomitant]
     Active Substance: QUETIAPINE FUMARATE
     Dosage: 25 MILLIGRAM

REACTIONS (1)
  - Death [Fatal]

NARRATIVE: CASE EVENT DATE: 20220525
